FAERS Safety Report 7776187-X (Version None)
Quarter: 2011Q3

REPORT INFORMATION
  Report Type: 
  Country: None (occurrence: None)
  Receive Date: 20110926
  Receipt Date: 20110916
  Transmission Date: 20111222
  Serious: Yes (Hospitalization)
  Sender: FDA-Public Use
  Company Number: US-RB-027559-11

PATIENT
  Sex: Female

DRUGS (1)
  1. CLEARASIL VANISHING ACNE TREATMENT CREAM [Suspect]
     Indication: PRODUCT USED FOR UNKNOWN INDICATION
     Dosage: AUGUST 4-6TH, 2011
     Route: 061

REACTIONS (6)
  - DERMATITIS CONTACT [None]
  - RASH [None]
  - PAIN OF SKIN [None]
  - CELLULITIS [None]
  - LIP SWELLING [None]
  - ERYTHEMA [None]
